FAERS Safety Report 5668680-0 (Version None)
Quarter: 2008Q1

REPORT INFORMATION
  Report Type: 
  Country: None (occurrence: None)
  Receive Date: 20080312
  Receipt Date: 20080227
  Transmission Date: 20080703
  Serious: Yes (Other)
  Sender: FDA-Public Use
  Company Number: 2008S1000065

PATIENT
  Age: 39 Year
  Sex: Male

DRUGS (4)
  1. ACITRETIN [Suspect]
     Indication: PSORIASIS
     Dosage: 25 MG;QD;PO
     Route: 048
     Dates: start: 20071219, end: 20080102
  2. ACITRETIN [Suspect]
     Indication: PSORIASIS
     Dosage: 25 MG;QD;PO
     Route: 048
     Dates: start: 20080101, end: 20080221
  3. ROCEPHIN [Concomitant]
  4. MACLADIN [Concomitant]

REACTIONS (2)
  - BLOOD TRIGLYCERIDES INCREASED [None]
  - ERYSIPELAS [None]
